FAERS Safety Report 24274651 (Version 3)
Quarter: 2025Q3

REPORT INFORMATION
  Report Type: Spontaneous
  Country: BR (occurrence: BR)
  Receive Date: 20240902
  Receipt Date: 20250802
  Transmission Date: 20251021
  Serious: Yes (Life-Threatening, Other)
  Sender: ALEXION PHARMACEUTICALS
  Company Number: 2024A198913

PATIENT
  Sex: Male

DRUGS (1)
  1. SYMBICORT [Suspect]
     Active Substance: BUDESONIDE\FORMOTEROL FUMARATE DIHYDRATE
     Indication: Asthma
     Dosage: TWO TIMES A DAY

REACTIONS (6)
  - Asthma [Unknown]
  - Drug ineffective [Unknown]
  - Product use issue [Unknown]
  - Device leakage [Unknown]
  - Cough [Unknown]
  - Off label use [Not Recovered/Not Resolved]
